FAERS Safety Report 5384480-3 (Version None)
Quarter: 2007Q3

REPORT INFORMATION
  Report Type: 
  Country: None (occurrence: None)
  Receive Date: 20070711
  Receipt Date: 20070629
  Transmission Date: 20080115
  Serious: Yes (Other)
  Sender: FDA-Public Use
  Company Number: US-PFIZER INC-2007012333

PATIENT
  Sex: Female
  Weight: 53.5 kg

DRUGS (11)
  1. LIPITOR [Suspect]
     Indication: BLOOD CHOLESTEROL INCREASED
     Dates: start: 20040101, end: 20060701
  2. DRUG, UNSPECIFIED [Suspect]
     Indication: BLOOD CHOLESTEROL INCREASED
     Dates: start: 20061101, end: 20061201
  3. VYTORIN [Suspect]
     Indication: BLOOD CHOLESTEROL INCREASED
  4. ZOCOR [Suspect]
     Indication: BLOOD CHOLESTEROL INCREASED
  5. ZETIA [Suspect]
     Indication: BLOOD CHOLESTEROL INCREASED
     Dates: start: 20070201, end: 20070301
  6. SYNTHROID [Concomitant]
  7. ACYCLOVIR [Concomitant]
  8. PREMARIN [Concomitant]
  9. ZOLOFT [Concomitant]
  10. DIOVAN [Concomitant]
  11. HYDROCHLOROTHIAZIDE [Concomitant]

REACTIONS (12)
  - BLOOD THYROID STIMULATING HORMONE [None]
  - DISCOMFORT [None]
  - EMOTIONAL DISORDER [None]
  - EXERCISE TOLERANCE DECREASED [None]
  - FATIGUE [None]
  - GAIT DISTURBANCE [None]
  - LIMB DISCOMFORT [None]
  - MUSCLE FATIGUE [None]
  - MUSCULAR WEAKNESS [None]
  - MYALGIA [None]
  - PAIN IN EXTREMITY [None]
  - SPINAL OPERATION [None]
